FAERS Safety Report 6762204-2 (Version None)
Quarter: 2010Q2

REPORT INFORMATION
  Report Type: 
  Country: None (occurrence: None)
  Receive Date: 20100609
  Receipt Date: 20100602
  Transmission Date: 20101027
  Serious: Yes (Other)
  Sender: FDA-Public Use
  Company Number: BR-SANOFI-AVENTIS-2010SA032151

PATIENT
  Age: 68 Year
  Sex: Female
  Weight: 60 kg

DRUGS (1)
  1. ALLEGRA [Suspect]
     Route: 048
     Dates: start: 20100101, end: 20100101

REACTIONS (4)
  - DIZZINESS [None]
  - HEADACHE [None]
  - LARYNGEAL OEDEMA [None]
  - RASH [None]
